FAERS Safety Report 25175028 (Version 1)
Quarter: 2025Q2

REPORT INFORMATION
  Report Type: Spontaneous
  Country: JP (occurrence: JP)
  Receive Date: 20250408
  Receipt Date: 20250408
  Transmission Date: 20250716
  Serious: Yes (Other)
  Sender: ELI LILLY AND CO
  Company Number: JP-ELI_LILLY_AND_COMPANY-JP202504004134

PATIENT
  Age: 85 Year
  Sex: Female

DRUGS (1)
  1. FORTEO [Suspect]
     Active Substance: TERIPARATIDE
     Indication: Product used for unknown indication
     Route: 058
     Dates: start: 2023

REACTIONS (3)
  - Spinal disorder [Unknown]
  - Feeling abnormal [Unknown]
  - Intercepted product storage error [Unknown]
